FAERS Safety Report 14854349 (Version 1)
Quarter: 2018Q2

REPORT INFORMATION
  Report Type: Spontaneous
  Country: IT (occurrence: IT)
  Receive Date: 20180507
  Receipt Date: 20180507
  Transmission Date: 20180711
  Serious: Yes (Other)
  Sender: FDA-Public Use
  Company Number: IT-GILEAD-2018-0336998

PATIENT
  Age: 63 Year
  Sex: Male

DRUGS (5)
  1. FLUSPIRAL [Concomitant]
     Active Substance: FLUTICASONE PROPIONATE
  2. LIXIANA [Concomitant]
     Active Substance: EDOXABAN TOSYLATE
  3. MICARDISPLUS [Concomitant]
     Active Substance: HYDROCHLOROTHIAZIDE\TELMISARTAN
  4. EPCLUSA [Suspect]
     Active Substance: SOFOSBUVIR\VELPATASVIR
     Indication: HEPATITIS C
     Dosage: 1 DF, QD
     Route: 048
     Dates: start: 20180323, end: 20180410
  5. EKLIRA GENUAIR [Concomitant]
     Active Substance: ACLIDINIUM BROMIDE

REACTIONS (1)
  - Hypertensive crisis [Recovered/Resolved]

NARRATIVE: CASE EVENT DATE: 20180410
